FAERS Safety Report 8299574-2 (Version None)
Quarter: 2012Q2

REPORT INFORMATION
  Report Type: 
  Country: None (occurrence: None)
  Receive Date: 20120419
  Receipt Date: 20120412
  Transmission Date: 20120825
  Serious: Yes (Hospitalization)
  Sender: FDA-Public Use
  Company Number: US-GLAXOSMITHKLINE-A0794850A

PATIENT
  Age: 38 Year
  Sex: Male
  Weight: 130.9 kg

DRUGS (5)
  1. VYTORIN [Concomitant]
  2. AVANDIA [Suspect]
     Indication: DIABETES MELLITUS
     Dosage: 8MG PER DAY
     Route: 048
     Dates: start: 20050301
  3. LISINOPRIL [Concomitant]
  4. TESTOSTERONE [Concomitant]
  5. GLUCOTROL [Concomitant]

REACTIONS (3)
  - CORONARY ARTERY DISEASE [None]
  - MYOCARDIAL INFARCTION [None]
  - DEPRESSION [None]
